FAERS Safety Report 6143656-8 (Version None)
Quarter: 2009Q2

REPORT INFORMATION
  Report Type: 
  Country: None (occurrence: None)
  Receive Date: 20090403
  Receipt Date: 20090331
  Transmission Date: 20091009
  Serious: Yes (Hospitalization)
  Sender: FDA-Public Use
  Company Number: US-ASTRAZENECA-2007UW11102

PATIENT
  Age: 409 Month
  Sex: Female
  Weight: 99.8 kg

DRUGS (14)
  1. SEROQUEL [Suspect]
     Indication: SCHIZOPHRENIA
     Route: 048
     Dates: start: 20020801, end: 20020831
  2. SEROQUEL [Suspect]
     Route: 048
     Dates: start: 20020820, end: 20020919
  3. SEROQUEL [Suspect]
     Dosage: 350MG TO 600MG
     Route: 048
     Dates: start: 20030123, end: 20030406
  4. SEROQUEL [Suspect]
     Route: 048
     Dates: start: 20030408, end: 20030507
  5. SEROQUEL [Suspect]
     Route: 048
     Dates: start: 20030522, end: 20030621
  6. SEROQUEL [Suspect]
     Route: 048
     Dates: start: 20030703, end: 20030828
  7. SEROQUEL [Suspect]
     Dosage: 100MG AND 250MG
     Route: 048
     Dates: start: 20030830, end: 20031006
  8. SEROQUEL [Suspect]
     Route: 048
     Dates: start: 20030901, end: 20060508
  9. RISPERDAL [Concomitant]
  10. ZYPREXA [Concomitant]
  11. CLOZARIL [Concomitant]
  12. GEODON [Concomitant]
  13. HALDOL [Concomitant]
  14. NAVANE [Concomitant]

REACTIONS (2)
  - ILL-DEFINED DISORDER [None]
  - TYPE 2 DIABETES MELLITUS [None]
